FAERS Safety Report 8303475 (Version 7)
Quarter: 2016Q3

REPORT INFORMATION
  Report Type: Report from Study
  Country: CA (occurrence: CA)
  Receive Date: 20111220
  Receipt Date: 20160823
  Transmission Date: 20161109
  Serious: Yes (Other)
  Sender: FDA-Public Use
  Company Number: PHHY2011CA45857

PATIENT
  Age: 43 Year
  Sex: Female

DRUGS (4)
  1. SANDOSTATIN LAR DEPOT [Suspect]
     Active Substance: OCTREOTIDE ACETATE
     Indication: ACROMEGALY
     Dosage: 20 MG, QMO, EVERY 4 WEEKS
     Route: 030
     Dates: start: 20080605
  2. SANDOSTATIN LAR DEPOT [Suspect]
     Active Substance: OCTREOTIDE ACETATE
     Dosage: 30 MG, QMO, EVERY 4 WEEKS
     Route: 030
     Dates: start: 201111
  3. SANDOSTATIN LAR DEPOT [Suspect]
     Active Substance: OCTREOTIDE ACETATE
     Dosage: 20 MG, QMO, EVERY 4 WEEKS
     Route: 030
  4. COUMADINE [Concomitant]
     Active Substance: WARFARIN SODIUM
     Indication: PRODUCT USED FOR UNKNOWN INDICATION
     Dosage: 18 MG, UNK
     Route: 048

REACTIONS (20)
  - Anal abscess [Not Recovered/Not Resolved]
  - Diarrhoea [Unknown]
  - Menorrhagia [Unknown]
  - Cough [Unknown]
  - Amenorrhoea [Unknown]
  - Injection site pain [Unknown]
  - Decreased appetite [Unknown]
  - Blood pressure systolic increased [Unknown]
  - Insulin-like growth factor increased [Unknown]
  - Nausea [Unknown]
  - Pain in extremity [Not Recovered/Not Resolved]
  - Abdominal discomfort [Unknown]
  - Burning sensation [Unknown]
  - Influenza [Unknown]
  - Hypoaesthesia [Unknown]
  - Malaise [Unknown]
  - Abdominal pain upper [Unknown]
  - Hepatic pain [Unknown]
  - Back pain [Unknown]
  - Fatigue [Unknown]

NARRATIVE: CASE EVENT DATE: 201002
